FAERS Safety Report 7476139-3 (Version None)
Quarter: 2011Q2

REPORT INFORMATION
  Report Type: 
  Country: None (occurrence: None)
  Receive Date: 20110512
  Receipt Date: 20110509
  Transmission Date: 20111010
  Serious: Yes (Disabling)
  Sender: FDA-Public Use
  Company Number: GB-MERCK-1105GBR00026

PATIENT
  Age: 77 Year
  Sex: Male
  Weight: 85 kg

DRUGS (4)
  1. ASPIRIN [Concomitant]
     Route: 065
     Dates: start: 20110121
  2. OMEGA-3 ACID ETHYL ESTERS [Concomitant]
     Route: 065
     Dates: start: 20110121
  3. PRAVASTATIN SODIUM [Concomitant]
     Route: 065
     Dates: start: 20110204
  4. ZETIA [Suspect]
     Route: 048
     Dates: start: 20110404, end: 20110101

REACTIONS (1)
  - DYSPNOEA [None]
